FAERS Safety Report 9222945 (Version 1)
Quarter: 2013Q2

REPORT INFORMATION
  Report Type: Spontaneous
  Country: JP (occurrence: JP)
  Receive Date: 20130410
  Receipt Date: 20130410
  Transmission Date: 20140414
  Serious: Yes (Other)
  Sender: FDA-Public Use
  Company Number: JP-UCBSA-063420

PATIENT
  Age: 36 Year
  Sex: Male
  Weight: 60 kg

DRUGS (12)
  1. E KEPPRA [Suspect]
     Indication: EPILEPSY
     Dosage: 2000 MG
     Route: 048
     Dates: start: 20120608, end: 20120704
  2. E KEPPRA [Suspect]
     Indication: EPILEPSY
     Dosage: DAILY DOSE: 1500 MG
     Route: 048
     Dates: start: 20120511, end: 20120607
  3. E KEPPRA [Suspect]
     Indication: EPILEPSY
     Dosage: 1000 MG
     Route: 048
     Dates: start: 20120414, end: 20120510
  4. E KEPPRA [Suspect]
     Indication: EPILEPSY
     Dosage: DAILY DOSE: 1000 MG
     Route: 048
     Dates: start: 20120407, end: 20120413
  5. E KEPPRA [Suspect]
     Indication: EPILEPSY
     Dosage: DAILY DOSE: 750 MG
     Route: 048
     Dates: start: 20120331, end: 20120406
  6. E KEPPRA [Suspect]
     Indication: EPILEPSY
     Dosage: DAILY DOSE: 500 MG
     Route: 048
     Dates: start: 20120324, end: 20120330
  7. E KEPPRA [Suspect]
     Indication: EPILEPSY
     Route: 048
     Dates: start: 20120316, end: 20120323
  8. HYDANTOL [Concomitant]
     Dosage: DAILY DOSE: 250 MG
     Route: 048
     Dates: start: 19901126
  9. EPIRENAT [Concomitant]
     Dosage: DAILY DOSE: 1600 MG
     Route: 048
     Dates: start: 19901126
  10. EXCEGRAN [Concomitant]
     Dosage: DAILY DOSE: 350 MG
     Route: 048
     Dates: start: 19901126
  11. DIAMOX [Concomitant]
     Dosage: DAILY DOSE: 500 MG
     Route: 048
     Dates: start: 20050726
  12. MYSTAN [Concomitant]
     Dosage: DAILY DOSE: 10 MG
     Route: 048
     Dates: start: 20011106

REACTIONS (1)
  - Epilepsy [Recovering/Resolving]
